FAERS Safety Report 14963163 (Version 1)
Quarter: 2018Q2

REPORT INFORMATION
  Report Type: Spontaneous
  Country: FR (occurrence: FR)
  Receive Date: 20180601
  Receipt Date: 20180601
  Transmission Date: 20180711
  Serious: Yes (Death)
  Sender: FDA-Public Use
  Company Number: FR-MYLANLABS-2018M1035058

PATIENT
  Age: 66 Year
  Sex: Female

DRUGS (5)
  1. VANCOMYCIN [Suspect]
     Active Substance: VANCOMYCIN
     Indication: ENDOCARDITIS STAPHYLOCOCCAL
     Dosage: 30 MG/KG, QD
  2. EPINEPHRINE. [Suspect]
     Active Substance: EPINEPHRINE
     Indication: PRODUCT USED FOR UNKNOWN INDICATION
     Dosage: UNK
     Route: 040
  3. GENTAMICIN. [Suspect]
     Active Substance: GENTAMICIN
     Indication: ENDOCARDITIS STAPHYLOCOCCAL
     Dosage: 6 MG/KG, UNK
     Route: 040
  4. VANCOMYCIN [Suspect]
     Active Substance: VANCOMYCIN
     Dosage: 15 MG/KG, UNK
  5. PIPERACILLIN/TAZOBACTAM [Suspect]
     Active Substance: PIPERACILLIN SODIUM\TAZOBACTAM SODIUM
     Indication: ENDOCARDITIS STAPHYLOCOCCAL
     Dosage: 16 G, QD (CONTINUOUS INTRAVENOUS INFUSIONS)
     Route: 042

REACTIONS (5)
  - Incision site inflammation [None]
  - Cardiac perforation [None]
  - Drug ineffective [Fatal]
  - Septic shock [None]
  - Pericardial effusion [None]
